FAERS Safety Report 7951101-2 (Version None)
Quarter: 2011Q4

REPORT INFORMATION
  Report Type: 
  Country: None (occurrence: None)
  Receive Date: 20111201
  Receipt Date: 20111118
  Transmission Date: 20120403
  Serious: Yes (Other)
  Sender: FDA-Public Use
  Company Number: SE-ELI_LILLY_AND_COMPANY-SE201111006759

PATIENT
  Age: 49 Year
  Sex: Male

DRUGS (4)
  1. STRATTERA [Suspect]
     Dosage: 40 MG DAILY
     Route: 048
     Dates: start: 20101206, end: 20110817
  2. ACETAMINOPHEN [Concomitant]
  3. PRILOSEC [Concomitant]
  4. CORTOMYCIN [Concomitant]
     Dosage: UNK
     Route: 061

REACTIONS (1)
  - HEPATIC FIBROSIS [None]
